FAERS Safety Report 9215915 (Version 1)
Quarter: 2013Q2

REPORT INFORMATION
  Report Type: Spontaneous
  Country: US (occurrence: US)
  Receive Date: 20130408
  Receipt Date: 20130408
  Transmission Date: 20140414
  Serious: No
  Sender: FDA-Public Use
  Company Number: US-BIOGENIDEC-2013BI031985

PATIENT
  Age: 26 Year
  Sex: Male
  Weight: 95 kg

DRUGS (2)
  1. TYSABRI [Suspect]
     Indication: MULTIPLE SCLEROSIS
     Route: 042
     Dates: start: 20070411, end: 20121112
  2. GILENYA [Concomitant]
     Route: 048

REACTIONS (11)
  - Muscular weakness [Unknown]
  - Balance disorder [Unknown]
  - Influenza like illness [Unknown]
  - Fall [Recovered/Resolved]
  - Face injury [Unknown]
  - Hyperhidrosis [Unknown]
  - Cough [Unknown]
  - Dry mouth [Unknown]
  - Pain [Unknown]
  - Asthenia [Unknown]
  - Dyspnoea [Unknown]
